FAERS Safety Report 20380373 (Version 2)
Quarter: 2022Q1

REPORT INFORMATION
  Report Type: Spontaneous
  Country: US (occurrence: US)
  Receive Date: 20220127
  Receipt Date: 20220225
  Transmission Date: 20220423
  Serious: Yes (Death, Life-Threatening, Hospitalization, Other)
  Sender: FDA-Public Use
  Company Number: US-SUN PHARMACEUTICAL INDUSTRIES LTD-2019R1-231741

PATIENT
  Age: 16 Year
  Sex: Female

DRUGS (11)
  1. DEXAMETHASONE [Suspect]
     Active Substance: DEXAMETHASONE
     Indication: Acute graft versus host disease in skin
     Dosage: UNK
     Route: 065
     Dates: start: 20000615
  2. PREDNISONE [Suspect]
     Active Substance: PREDNISONE
     Indication: Acute graft versus host disease in skin
     Dosage: UNK
     Route: 048
     Dates: start: 2016, end: 2017
  3. METHYLPREDNISOLONE [Suspect]
     Active Substance: METHYLPREDNISOLONE
     Indication: Acute graft versus host disease in skin
     Dosage: UNK
     Route: 065
     Dates: start: 2017, end: 2017
  4. MYCOPHENOLATE MOFETIL [Suspect]
     Active Substance: MYCOPHENOLATE MOFETIL
     Indication: Acute graft versus host disease in skin
     Dosage: UNK
     Route: 065
     Dates: start: 2016, end: 2017
  5. TACROLIMUS [Suspect]
     Active Substance: TACROLIMUS
     Indication: Acute graft versus host disease in skin
     Dosage: UNK
     Route: 065
     Dates: start: 2016, end: 20170114
  6. METHOTREXATE [Suspect]
     Active Substance: METHOTREXATE
     Indication: Acute graft versus host disease in skin
     Dosage: UNK
     Route: 037
     Dates: start: 2017, end: 2017
  7. HYDROCORTISONE [Suspect]
     Active Substance: HYDROCORTISONE
     Indication: Acute graft versus host disease in skin
     Dosage: UNK
     Route: 065
     Dates: start: 2017, end: 2017
  8. RUXOLITINIB [Suspect]
     Active Substance: RUXOLITINIB
     Indication: Acute graft versus host disease in skin
     Dosage: UNK
     Route: 065
     Dates: start: 201611, end: 20170114
  9. RITUXIMAB [Suspect]
     Active Substance: RITUXIMAB
     Indication: Acute graft versus host disease in skin
     Dosage: 1 DF/1X
     Route: 065
     Dates: start: 20160525, end: 20160525
  10. SIROLIMUS [Suspect]
     Active Substance: SIROLIMUS
     Indication: Acute graft versus host disease in skin
     Dosage: UNK
     Route: 065
     Dates: start: 2016, end: 20170114
  11. ETOPOSIDE [Suspect]
     Active Substance: ETOPOSIDE
     Indication: Acute graft versus host disease in skin
     Dosage: UNK
     Route: 065
     Dates: start: 2017, end: 2017

REACTIONS (3)
  - JC virus infection [Fatal]
  - Encephalopathy [Fatal]
  - Upper respiratory tract infection [Not Recovered/Not Resolved]

NARRATIVE: CASE EVENT DATE: 20160101
